FAERS Safety Report 24410063 (Version 3)
Quarter: 2024Q4

REPORT INFORMATION
  Report Type: Spontaneous
  Country: US (occurrence: US)
  Receive Date: 20241008
  Receipt Date: 20241014
  Transmission Date: 20250115
  Serious: Yes (Other)
  Sender: ROCHE
  Company Number: US-ROCHE-10000097323

PATIENT
  Sex: Female

DRUGS (2)
  1. RITUXIMAB [Suspect]
     Active Substance: RITUXIMAB
     Indication: Neuromyelitis optica spectrum disorder
     Route: 065
  2. ENSPRYNG [Concomitant]
     Active Substance: SATRALIZUMAB-MWGE

REACTIONS (5)
  - B-lymphocyte count decreased [Unknown]
  - Pneumonia [Unknown]
  - Ear infection [Unknown]
  - Sinusitis [Unknown]
  - Off label use [Unknown]
